FAERS Safety Report 9130761 (Version 1)
Quarter: 2013Q1

REPORT INFORMATION
  Report Type: Report from Study
  Country: AU (occurrence: AU)
  Receive Date: 20130301
  Receipt Date: 20130301
  Transmission Date: 20140127
  Serious: Yes (Other)
  Sender: FDA-Public Use
  Company Number: PHHY2013AU017239

PATIENT
  Sex: Male

DRUGS (1)
  1. CLOZARIL [Suspect]
     Indication: SLEEP DISORDER
     Dosage: 25 MG, EVERY NIGHT
     Dates: start: 20010206

REACTIONS (2)
  - Anger [Unknown]
  - Antipsychotic drug level below therapeutic [Unknown]
